FAERS Safety Report 10497457 (Version 1)
Quarter: 2014Q4

REPORT INFORMATION
  Report Type: Spontaneous
  Country: IT (occurrence: None)
  Receive Date: 20141002
  Receipt Date: 20141002
  Transmission Date: 20150528
  Serious: Yes (Death)
  Sender: FDA-Public Use
  Company Number: INT_00433_2014

PATIENT
  Sex: Female

DRUGS (2)
  1. CARBOPLATIN (CARBOPLATIN) (HQ SPECIALTY) [Suspect]
     Active Substance: CARBOPLATIN
     Indication: OVARIAN CANCER
     Dosage: DOSE CALCULATED USING AUC 6 MG/ML PER MIN, GIVEN OVER 30 MINUTES ONCE EVERY 3 WEEKS, FOR 6 CYCLES
     Route: 042
  2. PACLITAXEL (PACLITAXEL) (HQ SPECIALTY) [Suspect]
     Active Substance: PACLITAXEL
     Indication: OVARIAN CANCER
     Dosage: 1X/21 DAYS

REACTIONS (1)
  - Intestinal perforation [None]
